APPROVED DRUG PRODUCT: METOLAZONE
Active Ingredient: METOLAZONE
Strength: 10MG
Dosage Form/Route: TABLET;ORAL
Application: A076482 | Product #002
Applicant: ROXANE LABORATORIES INC
Approved: Apr 29, 2004 | RLD: No | RS: No | Type: DISCN